FAERS Safety Report 3965725 (Version 3)
Quarter: 2015Q4

REPORT INFORMATION
  Report Type: Spontaneous
  Country: GB (occurrence: GB)
  Receive Date: 20030627
  Receipt Date: 20151230
  Transmission Date: 20160305
  Serious: Yes (Hospitalization)
  Sender: FDA-Public Use
  Company Number: PHFR2003GB02404

PATIENT
  Sex: Male

DRUGS (4)
  1. RAMIPRIL. [Concomitant]
     Active Substance: RAMIPRIL
     Indication: PRODUCT USED FOR UNKNOWN INDICATION
     Dosage: 10 MG, QD
     Route: 065
  2. ASPIRIN. [Concomitant]
     Active Substance: ASPIRIN
     Indication: PRODUCT USED FOR UNKNOWN INDICATION
     Dosage: 75 MG, QD
     Route: 065
  3. SIMVASTATIN. [Concomitant]
     Active Substance: SIMVASTATIN
     Indication: PRODUCT USED FOR UNKNOWN INDICATION
     Dosage: 20 MG, QD
     Route: 065
  4. TEGRETOL [Suspect]
     Active Substance: CARBAMAZEPINE
     Indication: NEURALGIA
     Dosage: 1 G, QD
     Route: 065

REACTIONS (10)
  - Insomnia [Recovering/Resolving]
  - Affective disorder [Recovering/Resolving]
  - Psychomotor hyperactivity [Recovering/Resolving]
  - Psoriasis [Unknown]
  - Mania [Recovering/Resolving]
  - Disinhibition [Recovering/Resolving]
  - Drug withdrawal syndrome [Recovering/Resolving]
  - Pressure of speech [Recovering/Resolving]
  - Flight of ideas [Recovering/Resolving]
  - Delusion of grandeur [Recovering/Resolving]
